FAERS Safety Report 9565385 (Version 1)
Quarter: 2013Q3

REPORT INFORMATION
  Report Type: Spontaneous
  Country: US (occurrence: US)
  Receive Date: 20130930
  Receipt Date: 20130930
  Transmission Date: 20140515
  Serious: Yes (Hospitalization)
  Sender: FDA-Public Use
  Company Number: US-BAYER-2013-117364

PATIENT
  Age: 30 Year
  Sex: Female
  Weight: 95.24 kg

DRUGS (5)
  1. YASMIN [Suspect]
  2. YAZ [Suspect]
  3. GIANVI [Suspect]
  4. SYNTHROID [Concomitant]
     Dosage: 125 MCG A DAY
  5. METFORMIN [Concomitant]
     Dosage: 1000 MG, BID

REACTIONS (2)
  - Pulmonary embolism [Recovered/Resolved]
  - Deep vein thrombosis [None]
